FAERS Safety Report 22182134 (Version 2)
Quarter: 2023Q2

REPORT INFORMATION
  Report Type: Spontaneous
  Country: FR (occurrence: FR)
  Receive Date: 20230406
  Receipt Date: 20230411
  Transmission Date: 20230722
  Serious: Yes (Death)
  Sender: FDA-Public Use
  Company Number: FR-AstraZeneca-2023A076729

PATIENT
  Age: 53 Year
  Sex: Female

DRUGS (1)
  1. TRASTUZUMAB DERUXTECAN [Suspect]
     Active Substance: TRASTUZUMAB DERUXTECAN
     Indication: HER2 positive breast cancer
     Dosage: UNK UNK, ONCE EVERY 3 WK
     Route: 042

REACTIONS (2)
  - Nausea [Fatal]
  - Vomiting [Fatal]

NARRATIVE: CASE EVENT DATE: 20230327
